FAERS Safety Report 14432394 (Version 1)
Quarter: 2018Q1

REPORT INFORMATION
  Report Type: Spontaneous
  Country: JP (occurrence: JP)
  Receive Date: 20180124
  Receipt Date: 20180124
  Transmission Date: 20180509
  Serious: Yes (Other)
  Sender: FDA-Public Use
  Company Number: JP-BAYER-2018-007406

PATIENT
  Age: 68 Year
  Sex: Male
  Weight: 83 kg

DRUGS (4)
  1. NEXAVAR [Suspect]
     Active Substance: SORAFENIB
     Indication: HEPATOCELLULAR CARCINOMA
     Dosage: 400MG
     Route: 048
  2. NEXAVAR [Suspect]
     Active Substance: SORAFENIB
     Indication: HEPATOCELLULAR CARCINOMA
     Dosage: 400MG
     Route: 048
     Dates: start: 201703
  3. NEXAVAR [Suspect]
     Active Substance: SORAFENIB
     Indication: HEPATOCELLULAR CARCINOMA
     Dosage: 800MG
     Route: 048
  4. STIVARGA [Suspect]
     Active Substance: REGORAFENIB
     Indication: HEPATOCELLULAR CARCINOMA
     Dosage: 160MG
     Route: 048

REACTIONS (9)
  - Ascites [None]
  - Palmar-plantar erythrodysaesthesia syndrome [Recovering/Resolving]
  - Decreased appetite [None]
  - Abdominal pain [None]
  - Palmar-plantar erythrodysaesthesia syndrome [None]
  - Gastric ulcer haemorrhage [None]
  - Dysphonia [None]
  - Diarrhoea [None]
  - Faeces discoloured [None]
